FAERS Safety Report 7110878-9 (Version None)
Quarter: 2010Q4

REPORT INFORMATION
  Report Type: 
  Country: None (occurrence: None)
  Receive Date: 20101118
  Receipt Date: 20101109
  Transmission Date: 20110411
  Serious: Yes (Disabling)
  Sender: FDA-Public Use
  Company Number: PHHY2010TR08795

PATIENT
  Sex: Male
  Weight: 81 kg

DRUGS (4)
  1. CERTICAN [Suspect]
     Dosage: 0.75 MG, UNK
     Dates: start: 20080901, end: 20091202
  2. SANDIMMUNE [Concomitant]
     Dosage: 225 MG
  3. DELTACORTRIL [Concomitant]
     Dosage: 5 MG
  4. CYCLOSPORINE [Concomitant]

REACTIONS (1)
  - PROTEINURIA [None]
